FAERS Safety Report 21472145 (Version 1)
Quarter: 2022Q4

REPORT INFORMATION
  Report Type: Report from Study
  Country: CA (occurrence: CA)
  Receive Date: 20221018
  Receipt Date: 20221018
  Transmission Date: 20230112
  Serious: Yes (Other)
  Sender: FDA-Public Use
  Company Number: CA-MYLANLABS-2022M1114619

PATIENT
  Age: 60 Year
  Sex: Female

DRUGS (1)
  1. VIAGRA [Suspect]
     Active Substance: SILDENAFIL CITRATE
     Indication: Hypertension
     Dosage: UNK
     Route: 065

REACTIONS (3)
  - Scleroderma [Unknown]
  - Off label use [Unknown]
  - Product use issue [Unknown]
